FAERS Safety Report 19383462 (Version 1)
Quarter: 2021Q2

REPORT INFORMATION
  Report Type: Spontaneous
  Country: US (occurrence: US)
  Receive Date: 20210607
  Receipt Date: 20210607
  Transmission Date: 20210717
  Serious: Yes (Other)
  Sender: FDA-Public Use
  Company Number: US-GLAXOSMITHKLINE-US2021GSK120776

PATIENT
  Sex: Female

DRUGS (16)
  1. RANITIDINE. [Suspect]
     Active Substance: RANITIDINE
     Indication: ULCER HAEMORRHAGE
  2. RANITIDINE CAPSULE [Suspect]
     Active Substance: RANITIDINE
     Indication: ULCER HAEMORRHAGE
  3. RANITIDINE CAPSULE [Suspect]
     Active Substance: RANITIDINE
     Indication: GASTRIC ULCER
     Dosage: UNK UNK, QD
     Route: 065
     Dates: start: 201201, end: 201401
  4. RANITIDINE CAPSULE [Suspect]
     Active Substance: RANITIDINE
     Indication: ULCER HAEMORRHAGE
  5. RANITIDINE. [Suspect]
     Active Substance: RANITIDINE
     Indication: ULCER HAEMORRHAGE
  6. RANITIDINE. [Suspect]
     Active Substance: RANITIDINE
     Indication: GASTRIC ULCER
     Dosage: UNK, QD
     Route: 065
     Dates: start: 201201, end: 201401
  7. RANITIDINE. [Suspect]
     Active Substance: RANITIDINE
     Indication: GASTRIC ULCER
     Dosage: UNK UNK, QD
     Route: 065
     Dates: start: 201201, end: 201401
  8. RANITIDINE. [Suspect]
     Active Substance: RANITIDINE
     Indication: ULCER HAEMORRHAGE
  9. ZANTAC [Suspect]
     Active Substance: RANITIDINE HYDROCHLORIDE
     Indication: GASTRIC ULCER
     Dosage: UNK UNK, QD
     Route: 065
     Dates: start: 201201, end: 201401
  10. ZANTAC [Suspect]
     Active Substance: RANITIDINE HYDROCHLORIDE
     Indication: ULCER HAEMORRHAGE
  11. RANITIDINE. [Suspect]
     Active Substance: RANITIDINE
     Indication: ULCER HAEMORRHAGE
  12. ZANTAC [Suspect]
     Active Substance: RANITIDINE HYDROCHLORIDE
     Indication: ULCER HAEMORRHAGE
  13. ZANTAC [Suspect]
     Active Substance: RANITIDINE HYDROCHLORIDE
     Indication: GASTRIC ULCER
     Dosage: UNK, QD
     Dates: start: 201201, end: 201401
  14. ZANTAC [Suspect]
     Active Substance: RANITIDINE HYDROCHLORIDE
     Indication: ULCER HAEMORRHAGE
  15. ZANTAC [Suspect]
     Active Substance: RANITIDINE HYDROCHLORIDE
     Indication: GASTRIC ULCER
     Dosage: UNK UNK, QD
     Route: 065
     Dates: start: 201201, end: 201401
  16. RANITIDINE. [Suspect]
     Active Substance: RANITIDINE
     Indication: GASTRIC ULCER
     Dosage: UNK, QD
     Route: 065
     Dates: start: 201201, end: 201401

REACTIONS (1)
  - Colorectal cancer [Unknown]
